FAERS Safety Report 7920373-2 (Version None)
Quarter: 2011Q4

REPORT INFORMATION
  Report Type: 
  Country: None (occurrence: None)
  Receive Date: 20111117
  Receipt Date: 20111109
  Transmission Date: 20120403
  Serious: Yes (Death, Life-Threatening, Hospitalization)
  Sender: FDA-Public Use
  Company Number: JP-CELGENEUS-087-50794-11071067

PATIENT
  Sex: Male
  Weight: 69 kg

DRUGS (20)
  1. PREDNISOLONE ACETATE [Concomitant]
     Dosage: 40 MILLIGRAM
     Route: 041
     Dates: start: 20110710, end: 20110726
  2. SULFAMETHOXAZOLE AND TRIMETHOPRIM [Concomitant]
     Dosage: 2 DOSAGE FORMS
     Route: 048
     Dates: start: 20110706, end: 20111012
  3. OLOPATADINE HCL [Concomitant]
     Dosage: 10 MILLIGRAM
     Route: 065
     Dates: start: 20110803, end: 20110816
  4. GRAN [Concomitant]
     Dosage: 150 MICROGRAM
     Route: 058
     Dates: start: 20111011, end: 20111012
  5. VANCOMYCIN HYCHLORIDE [Concomitant]
     Dosage: 2 GRAM
     Route: 041
     Dates: start: 20110708, end: 20110715
  6. PREDNISOLONE [Concomitant]
     Dosage: 10-40MG
     Route: 048
     Dates: start: 20110727, end: 20111012
  7. UNASYN [Concomitant]
     Dosage: 6 GRAM
     Route: 041
     Dates: start: 20111007, end: 20111012
  8. PREDNISOLONE [Concomitant]
     Dosage: 5 MILLIGRAM
     Route: 048
     Dates: end: 20110621
  9. MUCOSTA [Concomitant]
     Dosage: 200 MILLIGRAM
     Route: 048
     Dates: end: 20110621
  10. FAMOTIDINE [Concomitant]
     Dosage: 20 MILLIGRAM
     Route: 048
     Dates: end: 20111021
  11. DORIPENEM MONOHYDRATE [Concomitant]
     Dosage: 1 GRAM
     Route: 041
     Dates: start: 20111010, end: 20111012
  12. VIDAZA [Suspect]
     Indication: MYELODYSPLASTIC SYNDROME
     Dosage: 75 MILLIGRAM/SQ. METER
     Route: 041
     Dates: start: 20110608, end: 20110614
  13. MAGNESIUM SULFATE [Concomitant]
     Dosage: 1980 MILLIGRAM
     Route: 048
     Dates: start: 20110617, end: 20111021
  14. MAXIPIME [Concomitant]
     Dosage: 4 MILLIGRAM
     Route: 041
     Dates: start: 20110624, end: 20110707
  15. AMBISOME [Concomitant]
     Dosage: 150 MILLIGRAM
     Route: 041
     Dates: start: 20110706, end: 20110718
  16. SOLU-MEDROL [Concomitant]
     Dosage: 1000 MILLIGRAM
     Route: 041
     Dates: start: 20110707, end: 20110709
  17. VIDAZA [Suspect]
     Dosage: 75 MILLIGRAM/SQ. METER
     Route: 041
     Dates: start: 20110914, end: 20110920
  18. COMELIAN [Concomitant]
     Dosage: 150 MILLIGRAM
     Route: 048
     Dates: end: 20111021
  19. HOKUNALIN [Concomitant]
     Dosage: 2 MILLIGRAM
     Route: 065
     Dates: start: 20110707, end: 20111021
  20. SULFAMETHOXAZOLE AND TRIMETHOPRIM [Concomitant]
     Route: 048
     Dates: start: 20110704, end: 20110705

REACTIONS (4)
  - GASTROINTESTINAL HAEMORRHAGE [None]
  - ERYTHEMA [None]
  - PNEUMONIA [None]
  - INTERSTITIAL LUNG DISEASE [None]
